FAERS Safety Report 12731370 (Version 1)
Quarter: 2016Q3

REPORT INFORMATION
  Report Type: Spontaneous
  Country: US (occurrence: US)
  Receive Date: 20160912
  Receipt Date: 20160912
  Transmission Date: 20161109
  Serious: No
  Sender: FDA-Public Use
  Company Number: US-ASTRAZENECA-2016SE91306

PATIENT
  Age: 15272 Day
  Sex: Female
  Weight: 84.4 kg

DRUGS (5)
  1. BYETTA [Suspect]
     Active Substance: EXENATIDE
     Indication: OBESITY
     Dosage: 250 MCG / 2.4 ML PEN
     Route: 058
  2. BYETTA [Suspect]
     Active Substance: EXENATIDE
     Indication: INSULIN RESISTANCE
     Route: 058
  3. METFORMIN [Concomitant]
     Active Substance: METFORMIN HYDROCHLORIDE
  4. BYETTA [Suspect]
     Active Substance: EXENATIDE
     Indication: OBESITY
     Route: 058
  5. BYETTA [Suspect]
     Active Substance: EXENATIDE
     Indication: INSULIN RESISTANCE
     Dosage: 250 MCG / 2.4 ML PEN
     Route: 058

REACTIONS (2)
  - Drug dose omission [Unknown]
  - Hunger [Unknown]

NARRATIVE: CASE EVENT DATE: 20160823
